FAERS Safety Report 6262813-3 (Version None)
Quarter: 2009Q3

REPORT INFORMATION
  Report Type: 
  Country: None (occurrence: None)
  Receive Date: 20090709
  Receipt Date: 20090702
  Transmission Date: 20100115
  Serious: Yes (Hospitalization, Other)
  Sender: FDA-Public Use
  Company Number: IE-AMGEN-US330201

PATIENT
  Sex: Male

DRUGS (2)
  1. ENBREL [Suspect]
     Indication: RHEUMATOID ARTHRITIS
     Dosage: 50 MG (FREQUENCY UNKNOWN)
     Dates: start: 20050101, end: 20090101
  2. DIFENE [Concomitant]
     Dosage: 75 MG (FREQUENCY UNKNOWN)
     Route: 048

REACTIONS (1)
  - GUILLAIN-BARRE SYNDROME [None]
